FAERS Safety Report 6959291-5 (Version None)
Quarter: 2010Q3

REPORT INFORMATION
  Report Type: 
  Country: None (occurrence: None)
  Receive Date: 20100831
  Receipt Date: 20100824
  Transmission Date: 20110219
  Serious: No
  Sender: FDA-Public Use
  Company Number: US-PFIZER INC-2010106940

PATIENT
  Sex: Male
  Weight: 57.143 kg

DRUGS (3)
  1. TOVIAZ [Suspect]
     Indication: MICTURITION DISORDER
     Dosage: 4 MG, 1X/DAY
     Route: 048
     Dates: start: 20100801
  2. VITAMIN B-12 [Concomitant]
     Dosage: UNK
  3. ACETYLSALICYLIC ACID [Concomitant]
     Dosage: UNK
     Route: 048

REACTIONS (1)
  - DRUG INEFFECTIVE [None]
